FAERS Safety Report 5788141-8 (Version None)
Quarter: 2008Q2

REPORT INFORMATION
  Report Type: 
  Country: None (occurrence: None)
  Receive Date: 20080625
  Receipt Date: 20080619
  Transmission Date: 20081010
  Serious: No
  Sender: FDA-Public Use
  Company Number: US-BOEHRINGER INGELHEIM GMBH, GERMANY-2008-BP-09580BP

PATIENT
  Sex: Male

DRUGS (4)
  1. ZANTAC 150 [Suspect]
     Indication: ULCER
     Route: 048
     Dates: end: 20080501
  2. FE [Concomitant]
     Indication: SUPPLEMENTATION THERAPY
     Route: 048
  3. VITAMIN B COMPLEX CAP [Concomitant]
     Indication: SUPPLEMENTATION THERAPY
  4. STOOL SOFTENERS [Concomitant]
     Indication: FAECES HARD
     Route: 048

REACTIONS (1)
  - ANAEMIA [None]
